FAERS Safety Report 13639964 (Version 1)
Quarter: 2017Q2

REPORT INFORMATION
  Report Type: Spontaneous
  Country: US (occurrence: US)
  Receive Date: 20170609
  Receipt Date: 20170609
  Transmission Date: 20170830
  Serious: No
  Sender: FDA-Public Use
  Company Number: US-ROCHE-1459629

PATIENT
  Sex: Female

DRUGS (16)
  1. PROLIA [Concomitant]
     Active Substance: DENOSUMAB
     Route: 065
  2. PROTONIX [Concomitant]
     Active Substance: PANTOPRAZOLE SODIUM
  3. KLONOPIN [Suspect]
     Active Substance: CLONAZEPAM
     Indication: ANXIETY
     Route: 065
     Dates: end: 20140901
  4. KLONOPIN [Suspect]
     Active Substance: CLONAZEPAM
     Route: 048
     Dates: start: 20141108
  5. VALTREX [Concomitant]
     Active Substance: VALACYCLOVIR HYDROCHLORIDE
  6. BONIVA [Suspect]
     Active Substance: IBANDRONATE SODIUM
     Indication: PRODUCT USED FOR UNKNOWN INDICATION
     Route: 065
  7. RITALIN [Concomitant]
     Active Substance: METHYLPHENIDATE HYDROCHLORIDE
     Indication: ATTENTION DEFICIT/HYPERACTIVITY DISORDER
  8. VALIUM [Suspect]
     Active Substance: DIAZEPAM
     Indication: PRODUCT USED FOR UNKNOWN INDICATION
     Route: 065
  9. ATIVAN [Concomitant]
     Active Substance: LORAZEPAM
  10. KLONOPIN [Suspect]
     Active Substance: CLONAZEPAM
     Route: 065
     Dates: start: 20141108
  11. FOSAMAX [Concomitant]
     Active Substance: ALENDRONATE SODIUM
  12. CLONAZEPAM. [Suspect]
     Active Substance: CLONAZEPAM
     Indication: ANXIETY
     Route: 065
  13. CLONAZEPAM. [Suspect]
     Active Substance: CLONAZEPAM
     Route: 065
  14. WELLBUTRIN [Concomitant]
     Active Substance: BUPROPION HYDROCHLORIDE
  15. ARMOUR THYROID [Concomitant]
     Active Substance: THYROID, PORCINE
     Indication: HYPOTHYROIDISM
  16. ZYRTEC [Concomitant]
     Active Substance: CETIRIZINE HYDROCHLORIDE
     Indication: HYPERSENSITIVITY

REACTIONS (29)
  - Mental impairment [Not Recovered/Not Resolved]
  - Asthma [Unknown]
  - Drug hypersensitivity [Unknown]
  - Drug ineffective [Unknown]
  - Pruritus [Unknown]
  - Surgery [Unknown]
  - Depression [Unknown]
  - Oesophageal irritation [Not Recovered/Not Resolved]
  - Thyroid hormones increased [Unknown]
  - Hallucination [Recovered/Resolved]
  - Anxiety [Unknown]
  - Nervousness [Unknown]
  - Blood thyroid stimulating hormone decreased [Unknown]
  - Osteochondrosis [Unknown]
  - Therapeutic response shortened [Unknown]
  - Therapeutic response decreased [Unknown]
  - Mastication disorder [Unknown]
  - Feeling abnormal [Unknown]
  - Dizziness [Unknown]
  - Dyspnoea [Unknown]
  - Impatience [Unknown]
  - Agitation [Unknown]
  - Mood swings [Unknown]
  - Expired product administered [Unknown]
  - Nausea [Unknown]
  - Memory impairment [Unknown]
  - Fatigue [Unknown]
  - Weight decreased [Unknown]
  - Cognitive disorder [Unknown]
